FAERS Safety Report 6567830-1 (Version None)
Quarter: 2010Q1

REPORT INFORMATION
  Report Type: 
  Country: None (occurrence: None)
  Receive Date: 20100203
  Receipt Date: 20100128
  Transmission Date: 20100710
  Serious: Yes (Hospitalization)
  Sender: FDA-Public Use
  Company Number: FR-JNJFOC-20100111218

PATIENT
  Age: 84 Year
  Sex: Female

DRUGS (4)
  1. TAVANIC [Suspect]
     Indication: BRONCHIOLITIS
     Route: 048
  2. FLUINDIONE [Interacting]
     Indication: PROPHYLAXIS
     Route: 048
  3. HEMIGOXINE NATIVELLE [Suspect]
     Indication: CARDIAC FAILURE
     Route: 048
  4. LASILIX [Concomitant]
     Route: 065

REACTIONS (4)
  - DRUG INTERACTION [None]
  - INFUSION SITE HAEMORRHAGE [None]
  - INTERNATIONAL NORMALISED RATIO INCREASED [None]
  - RECTAL HAEMORRHAGE [None]
